FAERS Safety Report 12071650 (Version 1)
Quarter: 2016Q1

REPORT INFORMATION
  Report Type: Report from Study
  Country: US (occurrence: US)
  Receive Date: 20160212
  Receipt Date: 20160212
  Transmission Date: 20160526
  Serious: Yes (Other)
  Sender: FDA-Public Use
  Company Number: PHEH2016US002852

PATIENT
  Sex: Male

DRUGS (1)
  1. SANDOSTATIN LAR DEPOT [Suspect]
     Active Substance: OCTREOTIDE ACETATE
     Indication: HEPATIC NEOPLASM
     Dosage: UNK OT, QMO (ONCE A MONTH)
     Route: 065
     Dates: start: 20150101

REACTIONS (3)
  - Metastases to kidney [Unknown]
  - Metastases to chest wall [Unknown]
  - Hepatic cancer recurrent [Unknown]
